FAERS Safety Report 10191859 (Version 2)
Quarter: 2014Q2

REPORT INFORMATION
  Report Type: Spontaneous
  Country: US (occurrence: US)
  Receive Date: 20140523
  Receipt Date: 20140523
  Transmission Date: 20141212
  Serious: No
  Sender: FDA-Public Use
  Company Number: US-AMGEN INC.-USASP2014023568

PATIENT
  Age: 70 Year
  Sex: Female
  Weight: 56.9 kg

DRUGS (15)
  1. PROLIA [Suspect]
     Indication: OSTEOPOROSIS
     Dosage: 60 MG, Q6MO
     Route: 058
     Dates: start: 20130909
  2. ALBUTEROL                          /00139501/ [Concomitant]
     Route: 045
  3. VENTOLIN HFA [Concomitant]
     Route: 045
  4. XANAX [Concomitant]
     Dosage: 0.25 MG, AS NECESSARY
     Route: 048
  5. CITRACAL + D                       /01438101/ [Concomitant]
     Route: 048
  6. VITAMIN B12                        /00056201/ [Concomitant]
     Route: 060
  7. FLONASE                            /00908302/ [Concomitant]
     Dosage: 50 MCG//ACT, UNK
     Route: 045
  8. LEVOTHROID [Concomitant]
     Dosage: 25 MUG, UNK
     Route: 048
  9. SYNTHROID [Concomitant]
     Dosage: 25 MUG, UNK
     Route: 048
  10. PRINZIDE [Concomitant]
     Dosage: 1 DF (20-25 MG), QD
     Route: 048
  11. ZESTORETIC [Concomitant]
     Dosage: 1 DF (20-25 MG), QD
     Route: 048
  12. PRILOSEC                           /00661201/ [Concomitant]
     Dosage: 20 MG, QD
     Route: 048
  13. PROTONIX [Concomitant]
     Dosage: 40 MG, QD
     Route: 048
  14. PROBIOTIC                          /06395501/ [Concomitant]
     Dosage: UNK UNK, QD
     Route: 048
  15. STRONTIUM [Concomitant]

REACTIONS (2)
  - Urinary tract infection [Unknown]
  - Tremor [Unknown]
